FAERS Safety Report 9200999 (Version 1)
Quarter: 2013Q2

REPORT INFORMATION
  Report Type: Spontaneous
  Country: IN (occurrence: IN)
  Receive Date: 20130401
  Receipt Date: 20130401
  Transmission Date: 20140414
  Serious: Yes (Other)
  Sender: FDA-Public Use
  Company Number: IN-JNJFOC-20130317095

PATIENT
  Sex: 0

DRUGS (5)
  1. DOXORUBICIN [Suspect]
     Indication: BREAST CANCER
     Dosage: 6 CYCLES IN FAC REGIMEN OR 4 CYCLES IN AC REGIMEN
     Route: 042
  2. FLUOROURACIL [Suspect]
     Indication: BREAST CANCER
     Dosage: 6 CYCLES
     Route: 065
  3. CYCLOPHOSPHAMIDE [Suspect]
     Indication: BREAST CANCER
     Dosage: 6 CYLES OF FAC REGIMEN AND 4 CYCLES OF AC
     Route: 065
  4. RADIOTHERAPY [Suspect]
     Indication: BREAST CANCER
     Route: 065
  5. TAXANES [Suspect]
     Indication: BREAST CANCER
     Dosage: 4 CYCLES
     Route: 065

REACTIONS (2)
  - Ejection fraction decreased [Unknown]
  - Electrocardiogram QT prolonged [Unknown]
